FAERS Safety Report 12355585 (Version 1)
Quarter: 2016Q2

REPORT INFORMATION
  Report Type: Spontaneous
  Country: FR (occurrence: FR)
  Receive Date: 20160511
  Receipt Date: 20160511
  Transmission Date: 20160815
  Serious: Yes (Other)
  Sender: FDA-Public Use
  Company Number: FR-009507513-1605FRA002992

PATIENT
  Age: 23 Year
  Sex: Female

DRUGS (1)
  1. NEXPLANON [Suspect]
     Active Substance: ETONOGESTREL
     Indication: CONTRACEPTION
     Dosage: UNK
     Route: 058
     Dates: start: 20131210, end: 20160301

REACTIONS (4)
  - Skin hyperpigmentation [Recovering/Resolving]
  - Pruritus [Recovering/Resolving]
  - Skin hypertrophy [Recovering/Resolving]
  - Rash pustular [Recovering/Resolving]
